FAERS Safety Report 6820468-0 (Version None)
Quarter: 2010Q3

REPORT INFORMATION
  Report Type: 
  Country: None (occurrence: None)
  Receive Date: 20100707
  Receipt Date: 20100630
  Transmission Date: 20110219
  Serious: Yes (Hospitalization)
  Sender: FDA-Public Use
  Company Number: US-GILEAD-2010-0030168

PATIENT
  Sex: Female
  Weight: 81.72 kg

DRUGS (8)
  1. LETAIRIS [Suspect]
     Indication: PULMONARY ARTERIAL HYPERTENSION
     Route: 048
     Dates: start: 20100210
  2. LOVENOX [Concomitant]
  3. COUMADIN [Concomitant]
  4. LORTAB [Concomitant]
  5. HYDROXYUREA [Concomitant]
  6. MOTRIN IB [Concomitant]
  7. FOLIC ACID [Concomitant]
  8. MULTI-VITAMIN [Concomitant]

REACTIONS (1)
  - SICKLE CELL ANAEMIA WITH CRISIS [None]
